FAERS Safety Report 9562420 (Version 1)
Quarter: 2013Q3

REPORT INFORMATION
  Report Type: Spontaneous
  Country: US (occurrence: US)
  Receive Date: 20130927
  Receipt Date: 20130927
  Transmission Date: 20140515
  Serious: Yes (Hospitalization, Other)
  Sender: FDA-Public Use
  Company Number: US-GLAXOSMITHKLINE-A1039869A

PATIENT
  Age: 84 Year
  Sex: Female
  Weight: 75 kg

DRUGS (2)
  1. TYKERB [Suspect]
     Indication: BREAST CANCER
     Dosage: 1500MG PER DAY
     Route: 048
     Dates: start: 20130117
  2. PRILOSEC [Concomitant]
     Indication: DYSPEPSIA

REACTIONS (2)
  - Accidental overdose [Recovered/Resolved]
  - Drug administration error [Unknown]
